FAERS Safety Report 22323634 (Version 2)
Quarter: 2023Q2

REPORT INFORMATION
  Report Type: Spontaneous
  Country: FR (occurrence: FR)
  Receive Date: 20230516
  Receipt Date: 20230523
  Transmission Date: 20230722
  Serious: Yes (Other)
  Sender: FDA-Public Use
  Company Number: None

PATIENT
  Age: 50 Year
  Sex: Male

DRUGS (7)
  1. RISPERDAL [Suspect]
     Active Substance: RISPERIDONE
     Indication: Schizophrenia
     Dosage: 1MG/ML : 0-0-2
     Route: 048
     Dates: start: 2022
  2. ZUCLOPENTHIXOL [Suspect]
     Active Substance: ZUCLOPENTHIXOL
     Indication: Schizophrenia
     Dosage: 100-0-100
     Route: 048
     Dates: start: 2022
  3. LOXAPINE SUCCINATE [Concomitant]
     Active Substance: LOXAPINE SUCCINATE
     Indication: Schizophrenia
     Dosage: 25-50-100
     Route: 048
     Dates: start: 2022
  4. LORMETAZEPAM [Concomitant]
     Active Substance: LORMETAZEPAM
     Indication: Schizophrenia
     Route: 048
     Dates: start: 2022
  5. PRAZEPAM [Concomitant]
     Active Substance: PRAZEPAM
     Indication: Schizophrenia
     Dosage: 4CP DE 10MG LE SOIR
     Route: 048
     Dates: start: 2022
  6. AKINETON [Concomitant]
     Active Substance: BIPERIDEN HYDROCHLORIDE
     Indication: Schizophrenia
     Route: 048
     Dates: start: 2022
  7. TRIMEPRAZINE [Concomitant]
     Active Substance: TRIMEPRAZINE
     Indication: Schizophrenia
     Dates: start: 2022

REACTIONS (1)
  - Salivary hypersecretion [Unknown]

NARRATIVE: CASE EVENT DATE: 20220101
